FAERS Safety Report 7088915-X (Version None)
Quarter: 2010Q4

REPORT INFORMATION
  Report Type: 
  Country: None (occurrence: None)
  Receive Date: 20101108
  Receipt Date: 20101028
  Transmission Date: 20110411
  Serious: Yes (Hospitalization)
  Sender: FDA-Public Use
  Company Number: FR-JNJFOC-20100111554

PATIENT
  Age: 29 Year
  Sex: Female

DRUGS (4)
  1. REMICADE [Suspect]
     Indication: CROHN'S DISEASE
     Route: 042
  2. REMICADE [Suspect]
     Route: 042
  3. HYDROCORTISONE [Concomitant]
  4. CORTANCYL [Concomitant]

REACTIONS (7)
  - DIZZINESS [None]
  - DYSPNOEA [None]
  - FEELING ABNORMAL [None]
  - INFUSION RELATED REACTION [None]
  - NERVOUS SYSTEM DISORDER [None]
  - PALPITATIONS [None]
  - TINNITUS [None]
